FAERS Safety Report 9011366 (Version 1)
Quarter: 2013Q1

REPORT INFORMATION
  Report Type: Spontaneous
  Country: US (occurrence: US)
  Receive Date: 20130108
  Receipt Date: 20130108
  Transmission Date: 20140127
  Serious: No
  Sender: FDA-Public Use
  Company Number: US-PFIZER INC-2013005611

PATIENT
  Age: 33 Year
  Sex: Female

DRUGS (1)
  1. CARBOPLATIN [Suspect]
     Indication: LUNG CARCINOMA CELL TYPE UNSPECIFIED STAGE IV
     Dosage: UNK

REACTIONS (1)
  - Hypersensitivity [Unknown]
